FAERS Safety Report 13078204 (Version 6)
Quarter: 2018Q4

REPORT INFORMATION
  Report Type: Report from Study
  Country: US (occurrence: US)
  Receive Date: 20170102
  Receipt Date: 20181019
  Transmission Date: 20190204
  Serious: Yes (Hospitalization)
  Sender: FDA-Public Use
  Company Number: US-ALEXION PHARMACEUTICALS INC.-A201610409

PATIENT
  Age: 22 Year
  Sex: Female
  Weight: 86.89 kg

DRUGS (3)
  1. LOVENOX [Suspect]
     Active Substance: ENOXAPARIN SODIUM
     Indication: THROMBOSIS PROPHYLAXIS
     Dosage: 30 MG, QD
     Route: 058
  2. SOLIRIS [Suspect]
     Active Substance: ECULIZUMAB
     Dosage: 1200 MG, Q2W
     Route: 042
  3. SOLIRIS [Suspect]
     Active Substance: ECULIZUMAB
     Indication: PAROXYSMAL NOCTURNAL HAEMOGLOBINURIA
     Dosage: 900 MG, UNK
     Route: 042
     Dates: end: 20161219

REACTIONS (5)
  - Injection site bruising [Unknown]
  - Sinusitis [Unknown]
  - Exposure during pregnancy [Recovered/Resolved]
  - Induced labour [Recovered/Resolved]
  - Tachycardia [Not Recovered/Not Resolved]

NARRATIVE: CASE EVENT DATE: 20161212
